FAERS Safety Report 21019028 (Version 2)
Quarter: 2022Q3

REPORT INFORMATION
  Report Type: Spontaneous
  Country: US (occurrence: US)
  Receive Date: 20220628
  Receipt Date: 20220805
  Transmission Date: 20221027
  Serious: No
  Sender: FDA-Public Use
  Company Number: US-BRISTOL-MYERS SQUIBB COMPANY-2022-061287

PATIENT
  Age: 71 Year
  Sex: Female
  Weight: 76.3 kg

DRUGS (1)
  1. ABECMA [Suspect]
     Active Substance: IDECABTAGENE VICLEUCEL
     Indication: Plasma cell myeloma
     Dosage: DOSE : SEE ATTACHMENT;     FREQ : SEE ATTACHMENT
     Route: 042

REACTIONS (8)
  - Pyrexia [Unknown]
  - Hypotension [Unknown]
  - Fatigue [Unknown]
  - Alanine aminotransferase [Unknown]
  - Aspartate aminotransferase increased [Unknown]
  - Blood alkaline phosphatase [Unknown]
  - Decreased appetite [Unknown]
  - Headache [Unknown]

NARRATIVE: CASE EVENT DATE: 20220414
